FAERS Safety Report 6928202-0 (Version None)
Quarter: 2010Q3

REPORT INFORMATION
  Report Type: 
  Country: None (occurrence: None)
  Receive Date: 20100810
  Receipt Date: 20100726
  Transmission Date: 20110219
  Serious: Yes (Other)
  Sender: FDA-Public Use
  Company Number: AUR-APL-2010-01954

PATIENT
  Age: 56 Year
  Sex: Female

DRUGS (6)
  1. LISINOPRIL [Suspect]
     Indication: HYPERTENSION
     Dosage: DAILY,
  2. NORVASC [Suspect]
     Indication: HYPERTENSION
     Dosage: DAILY,
  3. REBIF [Suspect]
     Indication: MULTIPLE SCLEROSIS
     Dosage: 44MCG, 3 X WEEK, SUBCUTANEOUS
     Route: 058
     Dates: start: 20081201
  4. CYMBALTA [Concomitant]
  5. WELLBUTRIN [Concomitant]
  6. IRON/VITAMINS NOS [Concomitant]

REACTIONS (7)
  - CONCUSSION [None]
  - FALL [None]
  - HEADACHE [None]
  - HYPERTENSION [None]
  - HYPOTENSION [None]
  - LOSS OF CONSCIOUSNESS [None]
  - WOUND HAEMORRHAGE [None]
